FAERS Safety Report 8395013-1 (Version None)
Quarter: 2012Q2

REPORT INFORMATION
  Report Type: 
  Country: None (occurrence: None)
  Receive Date: 20120530
  Receipt Date: 20110628
  Transmission Date: 20120825
  Serious: Yes (Hospitalization)
  Sender: FDA-Public Use
  Company Number: US-VIIV HEALTHCARE LIMITED-A0933436A

PATIENT
  Age: 1 Day

DRUGS (3)
  1. RETROVIR [Suspect]
     Indication: HIV INFECTION
     Route: 065
     Dates: start: 20110618
  2. AMPICILLIN [Concomitant]
  3. GENTAMICIN [Concomitant]

REACTIONS (1)
  - DECREASED APPETITE [None]
